FAERS Safety Report 7592668-6 (Version None)
Quarter: 2011Q3

REPORT INFORMATION
  Report Type: 
  Country: None (occurrence: None)
  Receive Date: 20110706
  Receipt Date: 20110624
  Transmission Date: 20111222
  Serious: Yes (Other)
  Sender: FDA-Public Use
  Company Number: NL-ELI_LILLY_AND_COMPANY-NL201106002483

PATIENT
  Sex: Female
  Weight: 57 kg

DRUGS (12)
  1. DILTIAZEM [Concomitant]
     Indication: ARRHYTHMIA
     Dosage: 300 MG, QD
     Route: 048
     Dates: start: 20080101
  2. FORMOTEROL FUMARATE [Concomitant]
     Indication: CHRONIC OBSTRUCTIVE PULMONARY DISEASE
     Dosage: 2 DF, QD
     Route: 055
     Dates: start: 20070101
  3. BECLOMETASON [Concomitant]
     Indication: CHRONIC OBSTRUCTIVE PULMONARY DISEASE
     Dosage: 2 DF, QD
     Route: 055
  4. OMEPRAZOLE [Concomitant]
     Indication: PROPHYLAXIS
     Dosage: 40 MG, QD
     Route: 048
     Dates: start: 20010101
  5. AZITROMYCINE [Concomitant]
     Indication: CHRONIC OBSTRUCTIVE PULMONARY DISEASE
     Dosage: 250 MG, QOD
     Route: 048
     Dates: start: 20050101
  6. OXAZEPAM [Concomitant]
     Indication: TENSION
     Dosage: 10 MG, UNK
     Route: 048
     Dates: start: 20050101
  7. NITROGLYCERIN [Concomitant]
     Indication: PROPHYLAXIS
     Dosage: UNK
     Route: 060
     Dates: start: 20080601
  8. ALBUTEROL [Concomitant]
     Indication: CHRONIC OBSTRUCTIVE PULMONARY DISEASE
     Dosage: 400 UG, UNK
     Route: 055
     Dates: start: 19800101
  9. TOBRAMYCIN [Concomitant]
     Indication: LUNG INFECTION
     Dosage: 1 DF, UNK
     Route: 055
     Dates: start: 20110323
  10. FORTEO [Suspect]
     Indication: OSTEOPOROSIS
     Dosage: 20 UG, QD
     Route: 058
     Dates: start: 20100419, end: 20110501
  11. ACETYLCYSTEINE [Concomitant]
     Indication: RHINORRHOEA
     Dosage: 3 DF, QD
     Route: 048
     Dates: start: 19800101
  12. ACETYLSALICYLZUUR CARDIO [Concomitant]
     Indication: PROPHYLAXIS
     Dosage: 80 MG, QD
     Route: 048
     Dates: start: 20080601

REACTIONS (7)
  - HYPERHIDROSIS [None]
  - DRY MOUTH [None]
  - DIZZINESS [None]
  - HEART RATE INCREASED [None]
  - MICTURITION URGENCY [None]
  - NAUSEA [None]
  - BLOOD POTASSIUM INCREASED [None]
